FAERS Safety Report 5693646-4 (Version None)
Quarter: 2008Q2

REPORT INFORMATION
  Report Type: 
  Country: None (occurrence: None)
  Receive Date: 20080403
  Receipt Date: 20080328
  Transmission Date: 20081010
  Serious: Yes (Hospitalization, Disabling)
  Sender: FDA-Public Use
  Company Number: US-GENENTECH-253571

PATIENT
  Sex: Female
  Weight: 80.726 kg

DRUGS (1)
  1. BEVACIZUMAB [Suspect]
     Indication: GLIOBLASTOMA MULTIFORME
     Dosage: 718 MG, Q2W
     Route: 042
     Dates: start: 20071206

REACTIONS (1)
  - CORONARY ARTERY DISEASE [None]
